FAERS Safety Report 20128958 (Version 1)
Quarter: 2021Q4

REPORT INFORMATION
  Report Type: Other
  Country: GB (occurrence: None)
  Receive Date: 20211130
  Receipt Date: 20211130
  Transmission Date: 20220303
  Serious: Yes (Hospitalization)
  Sender: FDA-Public Use
  Company Number: GB-ROCHE-2941861

PATIENT
  Sex: Male

DRUGS (1)
  1. ESBRIET [Suspect]
     Active Substance: PIRFENIDONE
     Indication: Idiopathic pulmonary fibrosis
     Dosage: 3 TABLETS TO BE TAKEN 3 TIMES A DAY ;ONGOING: YES
     Route: 048
     Dates: start: 201903

REACTIONS (2)
  - Decreased appetite [Unknown]
  - Cardiac disorder [Unknown]
